FAERS Safety Report 10180775 (Version 1)
Quarter: 2014Q2

REPORT INFORMATION
  Report Type: Spontaneous
  Country: US (occurrence: US)
  Receive Date: 20140519
  Receipt Date: 20140519
  Transmission Date: 20141212
  Serious: No
  Sender: FDA-Public Use
  Company Number: US-AMGEN INC.-USASP2014014323

PATIENT
  Age: 74 Year
  Sex: Female

DRUGS (8)
  1. PROLIA [Suspect]
     Indication: PRODUCT USED FOR UNKNOWN INDICATION
     Dosage: UNK
     Route: 065
     Dates: start: 201312
  2. PLAQUENIL                          /00072602/ [Concomitant]
  3. PREDNISONE [Concomitant]
  4. ADVAIR [Concomitant]
  5. FLONASE                            /00908302/ [Concomitant]
  6. PRAVACHOL [Concomitant]
  7. TOPROL [Concomitant]
  8. BABY ASPIRIN [Concomitant]
     Dosage: UNK UNK, QD

REACTIONS (8)
  - Sinusitis [Unknown]
  - Head discomfort [Not Recovered/Not Resolved]
  - Back pain [Unknown]
  - Eye swelling [Unknown]
  - Ocular hyperaemia [Unknown]
  - Photophobia [Unknown]
  - Migraine with aura [Unknown]
  - Laboratory test abnormal [Unknown]
